FAERS Safety Report 8096680-2 (Version None)
Quarter: 2012Q1

REPORT INFORMATION
  Report Type: 
  Country: None (occurrence: None)
  Receive Date: 20120129
  Receipt Date: 20111201
  Transmission Date: 20120608
  Serious: No
  Sender: FDA-Public Use
  Company Number: US-ABBOTT-11P-163-0880301-00

PATIENT
  Age: 45 Year
  Sex: Female

DRUGS (7)
  1. SYNTHROID [Concomitant]
     Indication: HYPOTHYROIDISM
  2. FOLIC ACID [Concomitant]
     Indication: PSORIATIC ARTHROPATHY
  3. OXYCODONE HCL [Concomitant]
     Indication: PAIN
  4. VITAMIN D [Concomitant]
     Indication: VITAMIN D DECREASED
  5. HUMIRA [Suspect]
     Indication: PSORIATIC ARTHROPATHY
     Dates: start: 20111101
  6. METHOTREXATE [Concomitant]
     Indication: PSORIATIC ARTHROPATHY
  7. OXYCODONE HCL [Concomitant]
     Indication: INTERVERTEBRAL DISC PROTRUSION

REACTIONS (2)
  - PRURITUS [None]
  - INJECTION SITE PAIN [None]
